FAERS Safety Report 19995715 (Version 2)
Quarter: 2021Q4

REPORT INFORMATION
  Report Type: Report from Study
  Country: BR (occurrence: BR)
  Receive Date: 20211026
  Receipt Date: 20211103
  Transmission Date: 20220304
  Serious: Yes (Death, Other)
  Sender: FDA-Public Use
  Company Number: BR-NOVARTISPH-NVSC2021BR241414

PATIENT
  Sex: Female
  Weight: 78.8 kg

DRUGS (1)
  1. TASIGNA [Suspect]
     Active Substance: NILOTINIB
     Indication: Chronic myeloid leukaemia
     Dosage: 600 MG
     Route: 048
     Dates: start: 20120216, end: 20201026

REACTIONS (8)
  - Chronic myeloid leukaemia [Fatal]
  - Haemorrhagic stroke [Fatal]
  - Uraemic encephalopathy [Fatal]
  - Acute kidney injury [Fatal]
  - White blood cell count decreased [Unknown]
  - Haemoglobin decreased [Unknown]
  - Asthenia [Unknown]
  - Platelet count increased [Unknown]
